FAERS Safety Report 4572017-8 (Version None)
Quarter: 2005Q1

REPORT INFORMATION
  Report Type: 
  Country: None (occurrence: None)
  Receive Date: 20050203
  Receipt Date: 20050203
  Transmission Date: 20050727
  Serious: Yes (Other)
  Sender: FDA-Public Use
  Company Number: None

PATIENT
  Age: 45 Year
  Sex: Female
  Weight: 67.7 kg

DRUGS (1)
  1. MAGNEVIST [Suspect]
     Dosage: 13 ML IV X 1
     Route: 042
     Dates: start: 20041026

REACTIONS (4)
  - CHEST DISCOMFORT [None]
  - GENERALISED ERYTHEMA [None]
  - PRURITUS [None]
  - SWOLLEN TONGUE [None]
